FAERS Safety Report 10173105 (Version 1)
Quarter: 2014Q2

REPORT INFORMATION
  Report Type: Spontaneous
  Country: US (occurrence: None)
  Receive Date: 20140418
  Receipt Date: 20140418
  Transmission Date: 20141212
  Serious: Yes (Other)
  Sender: FDA-Public Use
  Company Number: PHEH2014US003065

PATIENT
  Age: 29 Year
  Sex: Female
  Weight: 46 kg

DRUGS (4)
  1. TOBI PODHALER [Suspect]
     Indication: PSEUDOMONAS INFECTION
     Route: 055
  2. ALBUTEROL (SALBUTAMOL) [Concomitant]
  3. MUCOMYST (ACETYLCYSTEINE) [Concomitant]
  4. AMIKACIN (AMIKACIN) [Concomitant]

REACTIONS (4)
  - Chest discomfort [None]
  - Eosinophilia [None]
  - Wheezing [None]
  - Dyspnoea [None]
